FAERS Safety Report 9257555 (Version 2)
Quarter: 2013Q2

REPORT INFORMATION
  Report Type: Spontaneous
  Country: FR (occurrence: FR)
  Receive Date: 20130426
  Receipt Date: 20130501
  Transmission Date: 20140414
  Serious: Yes (Life-Threatening)
  Sender: FDA-Public Use
  Company Number: FR-PFIZER INC-2013124466

PATIENT
  Age: 24 Year
  Sex: Female

DRUGS (1)
  1. LEXOMIL [Suspect]
     Dosage: 4 TABLETS DAILY
     Route: 048
     Dates: start: 1988, end: 2012

REACTIONS (3)
  - Drug dependence [Recovered/Resolved]
  - Drug dependence [Recovered/Resolved]
  - Suicide attempt [Recovered/Resolved]
